FAERS Safety Report 7043712-6 (Version None)
Quarter: 2010Q4

REPORT INFORMATION
  Report Type: 
  Country: None (occurrence: None)
  Receive Date: 20101013
  Receipt Date: 20100930
  Transmission Date: 20110411
  Serious: Yes (Other)
  Sender: FDA-Public Use
  Company Number: KR-WATSON-2010-13409

PATIENT
  Age: 55 Year
  Sex: Male

DRUGS (3)
  1. ACYCLOVIR [Suspect]
     Indication: HERPES OPHTHALMIC
     Dosage: 400 MG, BID
     Route: 048
  2. MYCOPHENOLATE MOFETIL [Suspect]
     Indication: HERPES OPHTHALMIC
     Dosage: 1000 MG, BID
  3. CORTICOSTEROIDS [Suspect]
     Indication: KERATOPLASTY
     Dosage: 30 MG, DAILY

REACTIONS (2)
  - GRAND MAL CONVULSION [None]
  - POTENTIATING DRUG INTERACTION [None]
